FAERS Safety Report 9653231 (Version 2)
Quarter: 2013Q4

REPORT INFORMATION
  Report Type: Spontaneous
  Country: US (occurrence: US)
  Receive Date: 20131029
  Receipt Date: 20131119
  Transmission Date: 20140711
  Serious: Yes (Other)
  Sender: FDA-Public Use
  Company Number: US-TEVA-440928USA

PATIENT
  Sex: Female

DRUGS (2)
  1. CLOPIDOGREL [Suspect]
     Dates: start: 201211, end: 20131021
  2. PLAVIX [Suspect]
     Dosage: 75 MILLIGRAM DAILY;

REACTIONS (9)
  - Haemorrhage [Unknown]
  - Cerebrovascular accident [Unknown]
  - Convulsion [Unknown]
  - Visual impairment [Recovered/Resolved]
  - Eye movement disorder [Recovered/Resolved]
  - Eyelid disorder [Recovered/Resolved]
  - Visual acuity reduced [Recovered/Resolved]
  - Headache [Unknown]
  - Arteriosclerosis [Unknown]
